FAERS Safety Report 11054089 (Version 1)
Quarter: 2015Q2

REPORT INFORMATION
  Report Type: Spontaneous
  Country: US (occurrence: US)
  Receive Date: 20150422
  Receipt Date: 20150422
  Transmission Date: 20150821
  Serious: No
  Sender: FDA-Public Use
  Company Number: US-TEVA-490205USA

PATIENT
  Sex: Male

DRUGS (1)
  1. LOSARTAN [Suspect]
     Active Substance: LOSARTAN

REACTIONS (3)
  - Drug ineffective [Unknown]
  - Palpitations [Unknown]
  - Blood pressure inadequately controlled [Unknown]
